FAERS Safety Report 4356732-7 (Version None)
Quarter: 2004Q2

REPORT INFORMATION
  Report Type: 
  Country: None (occurrence: None)
  Receive Date: 20040507
  Receipt Date: 20040426
  Transmission Date: 20050107
  Serious: Yes (Disabling)
  Sender: FDA-Public Use
  Company Number: HQWYE564508APR03

PATIENT
  Age: 55 Year
  Sex: Female

DRUGS (2)
  1. DIMETAPP [Suspect]
     Indication: NASOPHARYNGITIS
     Dosage: UNKNOWN, ORAL
     Route: 048
  2. DIMETAPP [Suspect]
     Indication: SINUS CONGESTION
     Dosage: UNKNOWN, ORAL
     Route: 048

REACTIONS (1)
  - CEREBROVASCULAR ACCIDENT [None]
